FAERS Safety Report 7964905-7 (Version None)
Quarter: 2011Q4

REPORT INFORMATION
  Report Type: 
  Country: None (occurrence: None)
  Receive Date: 20111208
  Receipt Date: 20111128
  Transmission Date: 20120403
  Serious: Yes (Hospitalization)
  Sender: FDA-Public Use
  Company Number: SE-ROCHE-1017505

PATIENT
  Age: 85 Year
  Sex: Male

DRUGS (9)
  1. PERSANTIN [Concomitant]
  2. SIMVASTATIN [Concomitant]
  3. LUCENTIS [Suspect]
     Indication: PRODUCT USED FOR UNKNOWN INDICATION
     Route: 050
     Dates: end: 20110830
  4. AZOPT [Concomitant]
  5. TRAVATAN [Concomitant]
  6. BISOPROLOL FUMARATE [Concomitant]
  7. PLENDIL [Concomitant]
  8. ZOLPIDEM [Concomitant]
  9. ASPIRIN [Concomitant]

REACTIONS (1)
  - CEREBRAL ISCHAEMIA [None]
